FAERS Safety Report 8854615 (Version 1)
Quarter: 2012Q4

REPORT INFORMATION
  Report Type: 
  Country: US (occurrence: US)
  Receive Date: 20121023
  Receipt Date: 20121023
  Transmission Date: 20130627
  Serious: Yes (Hospitalization)
  Sender: FDA-Public Use
  Company Number: US-SANOFI-AVENTIS-2012SA074830

PATIENT
  Age: 49 Year
  Sex: Female

DRUGS (5)
  1. ZOLPIDEM TARTRATE [Suspect]
     Route: 048
     Dates: start: 20120831
  2. AMBRISENTAN [Suspect]
     Route: 065
     Dates: start: 20120417
  3. ALL OTHER THERAPEUTIC PRODUCTS [Suspect]
     Indication: CHRONIC PULMONARY HEART DISEASE
     Route: 065
     Dates: start: 20120612
  4. COUMADIN [Concomitant]
  5. ZYRTEC [Concomitant]

REACTIONS (3)
  - Loss of consciousness [Unknown]
  - Speech disorder [Unknown]
  - Road traffic accident [Unknown]
